FAERS Safety Report 8962502 (Version 1)
Quarter: 2012Q4

REPORT INFORMATION
  Report Type: Report from Study
  Country: SE (occurrence: SE)
  Receive Date: 20121213
  Receipt Date: 20121213
  Transmission Date: 20130627
  Serious: Yes (Hospitalization)
  Sender: FDA-Public Use
  Company Number: SE-PFIZER INC-2012309586

PATIENT
  Age: 54 Year
  Sex: Male
  Weight: 67 kg

DRUGS (48)
  1. METHYLPREDNISOLONE SODIUM SUCCINATE [Suspect]
     Indication: PROPHYLAXIS AGAINST RENAL TRANSPLANT REJECTION
     Dosage: 500 mg, 1x/day
     Route: 042
     Dates: start: 20030820, end: 20030823
  2. METHYLPREDNISOLONE SODIUM SUCCINATE [Suspect]
     Dosage: 250 mg, 1x/day
     Route: 042
     Dates: start: 20030824, end: 20030825
  3. PREDNISOLONE [Suspect]
     Indication: PROPHYLAXIS AGAINST RENAL TRANSPLANT REJECTION
     Dosage: 45 mg, 2x/day
     Route: 048
     Dates: start: 20030626
  4. PREDNISOLONE [Suspect]
     Dosage: 15 mg, 1x/day
     Route: 048
     Dates: start: 20030723
  5. PREDNISOLONE [Suspect]
     Dosage: 10 mg, 1x/day
     Route: 048
     Dates: start: 20030908
  6. PREDNISOLONE [Suspect]
     Dosage: 5 mg, 1x/day
     Route: 048
     Dates: start: 20041217
  7. PREDNISOLONE [Suspect]
     Dosage: 15 mg, 1x/day
     Route: 048
     Dates: start: 20050923
  8. PREDNISOLONE [Suspect]
     Dosage: 10 mg, 1x/day
     Route: 048
     Dates: start: 20050926
  9. PREDNISOLONE [Suspect]
     Dosage: 7.5 mg, 1x/day
     Route: 048
     Dates: start: 20051002
  10. PREDNISOLONE [Suspect]
     Dosage: 5 mg, 1x/day
     Route: 048
     Dates: start: 20051010
  11. PREDNISOLONE [Suspect]
     Indication: PROPHYLAXIS AGAINST RENAL TRANSPLANT REJECTION
     Dosage: 100 mg, single
     Route: 042
     Dates: start: 20030625, end: 20030625
  12. MYCOPHENOLATE MOFETIL [Suspect]
     Indication: PROPHYLAXIS AGAINST RENAL TRANSPLANT REJECTION
     Dosage: 1 g, 1x/day
     Route: 048
     Dates: start: 20030625
  13. MYCOPHENOLATE MOFETIL [Suspect]
     Dosage: 1 g, 2x/day
     Route: 048
     Dates: start: 20030626
  14. MYCOPHENOLATE MOFETIL [Suspect]
     Dosage: 750 mg, 2x/day
     Route: 048
     Dates: start: 200401
  15. MYCOPHENOLATE MOFETIL [Suspect]
     Dosage: 625 mg, 2x/day
     Route: 048
     Dates: start: 20040303
  16. MYCOPHENOLATE MOFETIL [Suspect]
     Dosage: 500 mg, 2x/day
     Route: 048
     Dates: start: 200403
  17. MYCOPHENOLATE MOFETIL [Suspect]
     Dosage: 250 mg, 2x/day
     Route: 048
     Dates: start: 20040512
  18. MYCOPHENOLATE MOFETIL [Suspect]
     Dosage: 500 mg, 2x/day
     Route: 048
     Dates: start: 20041117
  19. MYCOPHENOLATE MOFETIL [Suspect]
     Indication: PROPHYLAXIS AGAINST RENAL TRANSPLANT REJECTION
     Dosage: 250 mg, 2x/day
     Route: 048
     Dates: start: 20051012
  20. MYCOPHENOLATE MOFETIL [Suspect]
     Dosage: 375 mg, 2x/day
     Route: 048
     Dates: start: 20051018
  21. MYCOPHENOLATE MOFETIL [Suspect]
     Dosage: 500 mg, 2x/day
     Route: 048
     Dates: start: 20051022
  22. CICLOSPORIN [Suspect]
     Indication: PROPHYLAXIS AGAINST RENAL TRANSPLANT REJECTION
     Dosage: 250 mg, 1x/day
     Route: 048
     Dates: start: 20030625, end: 20030625
  23. CICLOSPORIN [Suspect]
     Dosage: 275 mg, 2x/day
  24. CICLOSPORIN [Suspect]
     Dosage: 250 mg, 2x/day
     Route: 048
     Dates: start: 20030628
  25. CICLOSPORIN [Suspect]
     Dosage: 200 mg, 2x/day
     Route: 048
     Dates: start: 20030630
  26. CICLOSPORIN [Suspect]
     Dosage: 125 mg, 2x/day
     Route: 048
     Dates: start: 20030702
  27. CICLOSPORIN [Suspect]
     Dosage: 112.5 mg, 2x/day
     Route: 048
     Dates: start: 20030723
  28. CICLOSPORIN [Suspect]
     Dosage: 250 mg, 2x/day
     Route: 048
     Dates: start: 20030728
  29. CICLOSPORIN [Suspect]
     Dosage: 100 mg, 2x/day
     Route: 048
     Dates: start: 20030806
  30. CICLOSPORIN [Suspect]
     Dosage: 85 mg, 1x/day
     Route: 048
     Dates: start: 20030823, end: 20030826
  31. TACROLIMUS [Suspect]
     Dosage: ROUTE REPORTED: PL 5 mg, 2x/day
     Dates: start: 20030826
  32. TACROLIMUS [Suspect]
     Dosage: ROUTE REPORTED: PL 2 mg, 2x/day
     Route: 048
     Dates: start: 20030908
  33. TACROLIMUS [Suspect]
     Dosage: 1 mg, 2x/day
     Route: 048
     Dates: start: 20031030
  34. TACROLIMUS [Suspect]
     Dosage: 1.25 mg, 2x/day
     Route: 048
     Dates: start: 20040512
  35. TACROLIMUS [Suspect]
     Dosage: 1.5 mg, 2x/day
     Route: 048
     Dates: start: 200408
  36. FLUDROCORTISONE [Suspect]
     Indication: PROPHYLAXIS AGAINST RENAL TRANSPLANT REJECTION
     Dosage: 0.1 mg, daily
     Route: 065
  37. ACICLOVIR [Concomitant]
     Dosage: 3 mg, 3x/day
     Route: 048
     Dates: start: 20030627, end: 20041117
  38. AMLODIPINE BESILATE [Concomitant]
     Dosage: 5 mg, 1x/day
     Route: 048
     Dates: start: 20030711, end: 20031217
  39. AMOXICILLIN [Concomitant]
     Dosage: 750 mg, 2x/day
     Route: 048
     Dates: start: 20031217, end: 20031227
  40. ATORVASTATIN CALCIUM [Concomitant]
     Dosage: 20 mg, 1x/day
     Route: 048
     Dates: end: 2003
  41. CALCIUM CARBONATE [Concomitant]
     Dosage: 6 DF, daily
     Dates: start: 20030628, end: 20031217
  42. FAMOTIDIN [Concomitant]
     Dosage: 20 mg, daily
     Dates: start: 20030902
  43. LEVOFLOXACIN [Concomitant]
     Dosage: 250 mg, 1x/day
     Route: 048
     Dates: end: 20030710
  44. LEVOFLOXACIN [Concomitant]
     Dosage: UNK
     Route: 048
     Dates: start: 20030715, end: 20030720
  45. LEVOTHYROXINE [Concomitant]
     Dosage: 1 mg, daily
  46. PIVAMPICILLIN [Concomitant]
     Dosage: 500 mg, 2 in 1 hr
     Route: 048
     Dates: start: 20030710, end: 20030725
  47. PIVMECILLINAM [Concomitant]
     Dosage: 200 mg, 3x/day
     Route: 048
     Dates: start: 20030705, end: 20030712
  48. VITAMIN D [Concomitant]
     Dosage: 6 DF, daily
     Dates: start: 20030628, end: 20031217

REACTIONS (3)
  - BK virus infection [Recovered/Resolved]
  - Blood creatinine increased [Recovered/Resolved]
  - Amyloidosis [Recovered/Resolved]
